FAERS Safety Report 8803071 (Version 2)
Quarter: 2012Q4

REPORT INFORMATION
  Report Type: 
  Country: BR (occurrence: BR)
  Receive Date: 20120924
  Receipt Date: 20121010
  Transmission Date: 20130627
  Serious: Yes (Death, Other)
  Sender: FDA-Public Use
  Company Number: BR-RANBAXY-2012R5-60022

PATIENT
  Age: 38 Year
  Sex: Male
  Weight: 82 kg

DRUGS (3)
  1. CEPHALEXIN [Suspect]
     Indication: POSTOPERATIVE CARE
     Dosage: 500 mg, qid
     Route: 048
     Dates: start: 20120909, end: 20120911
  2. IBUPROFEN [Concomitant]
     Indication: PAIN
     Dosage: 600 mg, qid
     Route: 065
  3. PARACETAMOL [Concomitant]
     Indication: PAIN
     Dosage: UNK
     Route: 065

REACTIONS (4)
  - Swelling face [Recovered/Resolved]
  - Abdominal distension [Recovered/Resolved]
  - Malaise [Recovered/Resolved]
  - Hypoaesthesia [Recovered/Resolved]
